FAERS Safety Report 12373534 (Version 7)
Quarter: 2016Q4

REPORT INFORMATION
  Report Type: Report from Study
  Country: CA (occurrence: CA)
  Receive Date: 20160516
  Receipt Date: 20161227
  Transmission Date: 20170207
  Serious: Yes (Other)
  Sender: FDA-Public Use
  Company Number: PHHY2014CA159553

PATIENT
  Age: 75 Year
  Sex: Female

DRUGS (1)
  1. SANDOSTATIN LAR DEPOT [Suspect]
     Active Substance: OCTREOTIDE ACETATE
     Indication: METASTATIC CARCINOID TUMOUR
     Dosage: 20 MG, QMO (EVERY 4 WEEKS)
     Route: 030
     Dates: start: 20140124

REACTIONS (20)
  - Metastases to liver [Unknown]
  - Neck pain [Recovering/Resolving]
  - Headache [Recovered/Resolved]
  - Arthritis [Unknown]
  - Malignant neoplasm progression [Unknown]
  - Haematochezia [Unknown]
  - Musculoskeletal pain [Recovering/Resolving]
  - Abnormal faeces [Unknown]
  - Arthralgia [Unknown]
  - Fibromyalgia [Recovering/Resolving]
  - Blood pressure systolic increased [Unknown]
  - Spinal pain [Recovering/Resolving]
  - Back pain [Recovering/Resolving]
  - Peripheral swelling [Unknown]
  - Vision blurred [Unknown]
  - Blood pressure increased [Unknown]
  - Dizziness [Unknown]
  - Joint swelling [Unknown]
  - Chest pain [Recovering/Resolving]
  - Tumour marker increased [Unknown]

NARRATIVE: CASE EVENT DATE: 20141202
